FAERS Safety Report 7626996-2 (Version None)
Quarter: 2011Q3

REPORT INFORMATION
  Report Type: 
  Country: None (occurrence: None)
  Receive Date: 20110714
  Receipt Date: 20110712
  Transmission Date: 20111222
  Serious: Yes (Hospitalization)
  Sender: FDA-Public Use
  Company Number: SP03714

PATIENT
  Age: 70 Year
  Sex: Male
  Weight: 99.7913 kg

DRUGS (4)
  1. TRIAMTERENE [Concomitant]
  2. XIFAXAN [Suspect]
     Indication: HEPATIC ENCEPHALOPATHY
     Dosage: 1100 MG (550 MG, 2 IN 1 D),ORAL
     Route: 048
     Dates: start: 20100101
  3. LISINOPRIL [Concomitant]
  4. URSO 250 [Concomitant]

REACTIONS (7)
  - PHARYNGEAL ERYTHEMA [None]
  - VERTIGO [None]
  - GAIT DISTURBANCE [None]
  - AMMONIA INCREASED [None]
  - BALANCE DISORDER [None]
  - DYSPHAGIA [None]
  - DYSPHONIA [None]
